FAERS Safety Report 5357129-3 (Version None)
Quarter: 2007Q2

REPORT INFORMATION
  Report Type: 
  Country: None (occurrence: None)
  Receive Date: 20070614
  Receipt Date: 20070605
  Transmission Date: 20071010
  Serious: Yes (Hospitalization)
  Sender: FDA-Public Use
  Company Number: AU-ROCHE-500596

PATIENT
  Age: 80 Year
  Sex: Female

DRUGS (1)
  1. CEFTRIAXONE SODIUM [Suspect]
     Indication: DRUG USE FOR UNKNOWN INDICATION
     Dosage: SHORT TERM.
     Route: 042
     Dates: start: 20070225, end: 20070228

REACTIONS (4)
  - ERYTHEMA [None]
  - EYE SWELLING [None]
  - SKIN BURNING SENSATION [None]
  - SKIN EXFOLIATION [None]
